FAERS Safety Report 9640098 (Version 3)
Quarter: 2013Q4

REPORT INFORMATION
  Report Type: Report from Study
  Country: US (occurrence: US)
  Receive Date: 20131023
  Receipt Date: 20131104
  Transmission Date: 20140711
  Serious: Yes (Death, Hospitalization)
  Sender: FDA-Public Use
  Company Number: PHHO2010US04719

PATIENT
  Sex: Male

DRUGS (1)
  1. SOM230 [Suspect]
     Indication: PANCREATIC CARCINOMA
     Dosage: 900 MG, BID
     Route: 058
     Dates: start: 20100219

REACTIONS (6)
  - Intra-abdominal haemorrhage [Fatal]
  - Vomiting [Fatal]
  - Unresponsive to stimuli [Fatal]
  - Atelectasis [Unknown]
  - Abdominal pain [Unknown]
  - Pneumonia [Unknown]
